FAERS Safety Report 24534747 (Version 2)
Quarter: 2025Q2

REPORT INFORMATION
  Report Type: Spontaneous
  Country: IT (occurrence: IT)
  Receive Date: 20241022
  Receipt Date: 20250414
  Transmission Date: 20250716
  Serious: Yes (Death, Life-Threatening)
  Sender: MYLAN
  Company Number: IT-MOLTENI-2024ML000415

PATIENT
  Age: 4 Decade
  Sex: Male

DRUGS (20)
  1. MIRTAZAPINE [Interacting]
     Active Substance: MIRTAZAPINE
     Indication: Product used for unknown indication
  2. MIRTAZAPINE [Interacting]
     Active Substance: MIRTAZAPINE
     Route: 065
  3. MIRTAZAPINE [Interacting]
     Active Substance: MIRTAZAPINE
     Route: 065
  4. MIRTAZAPINE [Interacting]
     Active Substance: MIRTAZAPINE
  5. DIAZEPAM [Interacting]
     Active Substance: DIAZEPAM
     Indication: Product used for unknown indication
  6. DIAZEPAM [Interacting]
     Active Substance: DIAZEPAM
     Route: 065
  7. DIAZEPAM [Interacting]
     Active Substance: DIAZEPAM
     Route: 065
  8. DIAZEPAM [Interacting]
     Active Substance: DIAZEPAM
  9. METHADONE [Interacting]
     Active Substance: METHADONE HYDROCHLORIDE
     Indication: Drug diversion
  10. METHADONE [Interacting]
     Active Substance: METHADONE HYDROCHLORIDE
     Route: 065
  11. METHADONE [Interacting]
     Active Substance: METHADONE HYDROCHLORIDE
     Route: 065
  12. METHADONE [Interacting]
     Active Substance: METHADONE HYDROCHLORIDE
  13. OXAZEPAM [Concomitant]
     Active Substance: OXAZEPAM
  14. OXAZEPAM [Concomitant]
     Active Substance: OXAZEPAM
     Route: 065
  15. OXAZEPAM [Concomitant]
     Active Substance: OXAZEPAM
     Route: 065
  16. OXAZEPAM [Concomitant]
     Active Substance: OXAZEPAM
  17. TEMAZEPAM [Concomitant]
     Active Substance: TEMAZEPAM
  18. TEMAZEPAM [Concomitant]
     Active Substance: TEMAZEPAM
     Route: 065
  19. TEMAZEPAM [Concomitant]
     Active Substance: TEMAZEPAM
     Route: 065
  20. TEMAZEPAM [Concomitant]
     Active Substance: TEMAZEPAM

REACTIONS (7)
  - Toxicity to various agents [Fatal]
  - Brain oedema [Fatal]
  - Pulmonary oedema [Fatal]
  - Pulmonary congestion [Fatal]
  - Drug interaction [Fatal]
  - Overdose [Fatal]
  - Drug diversion [Unknown]

NARRATIVE: CASE EVENT DATE: 20200101
